FAERS Safety Report 19278335 (Version 1)
Quarter: 2021Q2

REPORT INFORMATION
  Report Type: Spontaneous
  Country: US (occurrence: US)
  Receive Date: 20210520
  Receipt Date: 20210520
  Transmission Date: 20210717
  Serious: Yes (Other)
  Sender: FDA-Public Use
  Company Number: None

PATIENT
  Age: 42 Year
  Weight: 79.83 kg

DRUGS (2)
  1. ESOMEPRAZOLE 20MG [Suspect]
     Active Substance: ESOMEPRAZOLE
     Indication: GASTROOESOPHAGEAL REFLUX DISEASE
     Route: 048
     Dates: start: 20170101, end: 20201217
  2. ESOMEPRAZOLE 40MG [Suspect]
     Active Substance: ESOMEPRAZOLE
     Route: 048
     Dates: end: 201701

REACTIONS (2)
  - General symptom [None]
  - Product substitution issue [None]

NARRATIVE: CASE EVENT DATE: 20210329
